FAERS Safety Report 8769330 (Version 1)
Quarter: 2012Q4

REPORT INFORMATION
  Report Type: 
  Country: US (occurrence: US)
  Receive Date: 20120905
  Receipt Date: 20120905
  Transmission Date: 20130627
  Serious: No
  Sender: FDA-Public Use
  Company Number: US-BAYER-2012-089560

PATIENT
  Sex: Female

DRUGS (1)
  1. YAZ [Suspect]
     Indication: POLYCYSTIC OVARIES

REACTIONS (3)
  - Hirsutism [None]
  - Hair disorder [None]
  - Feeling of body temperature change [None]
